FAERS Safety Report 5907709-9 (Version None)
Quarter: 2008Q4

REPORT INFORMATION
  Report Type: 
  Country: None (occurrence: None)
  Receive Date: 20081003
  Receipt Date: 20080924
  Transmission Date: 20090506
  Serious: Yes (Hospitalization)
  Sender: FDA-Public Use
  Company Number: US-KINGPHARMUSA00001-K200801136

PATIENT

DRUGS (3)
  1. AVINZA [Suspect]
     Dosage: 30 MG, QD
     Route: 048
     Dates: start: 20080417
  2. AVINZA [Suspect]
     Dosage: 60 MG, QD
     Route: 048
     Dates: start: 20080430, end: 20080612
  3. COLACE [Concomitant]
     Indication: CONSTIPATION

REACTIONS (4)
  - CONSTIPATION [None]
  - INTESTINAL OBSTRUCTION [None]
  - NAUSEA [None]
  - VOMITING [None]
